FAERS Safety Report 6853814-2 (Version None)
Quarter: 2010Q3

REPORT INFORMATION
  Report Type: 
  Country: None (occurrence: None)
  Receive Date: 20100717
  Receipt Date: 20071214
  Transmission Date: 20110219
  Serious: No
  Sender: FDA-Public Use
  Company Number: US-PFIZER INC-2007106802

PATIENT
  Sex: Male
  Weight: 72.727 kg

DRUGS (11)
  1. CHANTIX [Suspect]
     Indication: SMOKING CESSATION THERAPY
     Dates: start: 20071001
  2. THEOPHYLLINE [Concomitant]
  3. CLONIDINE [Concomitant]
  4. TRAMADOL [Concomitant]
  5. LASIX [Concomitant]
  6. LEVOTHYROXINE SODIUM [Concomitant]
  7. ZAROXOLYN [Concomitant]
  8. ASPIRIN [Concomitant]
  9. HYDROCODONE [Concomitant]
  10. ADVAIR DISKUS 100/50 [Concomitant]
  11. ALBUTEROL [Concomitant]

REACTIONS (2)
  - NAUSEA [None]
  - VOMITING [None]
